FAERS Safety Report 6510706-6 (Version None)
Quarter: 2009Q4

REPORT INFORMATION
  Report Type: 
  Country: None (occurrence: None)
  Receive Date: 20091222
  Receipt Date: 20091021
  Transmission Date: 20100525
  Serious: No
  Sender: FDA-Public Use
  Company Number: US-ASTRAZENECA-2009SE21608

PATIENT
  Sex: Female
  Weight: 81.6 kg

DRUGS (3)
  1. CRESTOR [Suspect]
     Route: 048
  2. BLOOD PRESSURE MEDICATION [Concomitant]
  3. THYROID MEDICATION [Concomitant]

REACTIONS (2)
  - PAIN IN EXTREMITY [None]
  - PHARYNGEAL OEDEMA [None]
